FAERS Safety Report 7659833-0 (Version None)
Quarter: 2011Q3

REPORT INFORMATION
  Report Type: 
  Country: None (occurrence: None)
  Receive Date: 20110802
  Receipt Date: 20110721
  Transmission Date: 20111222
  Serious: Yes (Other)
  Sender: FDA-Public Use
  Company Number: 2011SP028141

PATIENT
  Age: 63 Year
  Sex: Female

DRUGS (3)
  1. REBETOL [Suspect]
     Indication: HEPATITIS C
     Dosage: 800 MG, QD, PO
     Route: 048
     Dates: start: 20100917, end: 20110304
  2. AMOXICILLIN AND CLAVULANATE POTASSIUM [Suspect]
     Indication: BRONCHITIS
     Dosage: PRN, PO
     Route: 048
     Dates: start: 20110501, end: 20110512
  3. PEG-INTRON [Suspect]
     Indication: HEPATITIS C
     Dosage: 80 MCG, QW, IV
     Route: 042
     Dates: start: 20100917, end: 20110225

REACTIONS (2)
  - BRONCHITIS [None]
  - ERYTHEMA NODOSUM [None]
